FAERS Safety Report 10949987 (Version 1)
Quarter: 2015Q1

REPORT INFORMATION
  Report Type: Spontaneous
  Country: US (occurrence: None)
  Receive Date: 20150323
  Receipt Date: 20150323
  Transmission Date: 20150721
  Serious: No
  Sender: FDA-Public Use
  Company Number: None

PATIENT
  Age: 47 Year
  Sex: Male
  Weight: 58.97 kg

DRUGS (1)
  1. XARELTO [Suspect]
     Active Substance: RIVAROXABAN
     Dosage: 2
     Route: 048
     Dates: start: 20141230, end: 20150127

REACTIONS (6)
  - Paraesthesia [None]
  - Change of bowel habit [None]
  - Asthenia [None]
  - Nausea [None]
  - Myalgia [None]
  - Night sweats [None]

NARRATIVE: CASE EVENT DATE: 20150105
